FAERS Safety Report 4501816-3 (Version None)
Quarter: 2004Q4

REPORT INFORMATION
  Report Type: 
  Country: None (occurrence: None)
  Receive Date: 20041115
  Receipt Date: 20041115
  Transmission Date: 20050328
  Serious: Yes (Life-Threatening, Hospitalization)
  Sender: FDA-Public Use
  Company Number: None

PATIENT
  Age: 52 Year
  Sex: Male
  Weight: 93 kg

DRUGS (2)
  1. OMEPRAZOLE [Suspect]
  2. FOSINOPRIL 40 MG TAB [Suspect]

REACTIONS (1)
  - ANGIONEUROTIC OEDEMA [None]
